FAERS Safety Report 4774797-5 (Version None)
Quarter: 2005Q3

REPORT INFORMATION
  Report Type: 
  Country: None (occurrence: None)
  Receive Date: 20050921
  Receipt Date: 20050908
  Transmission Date: 20060218
  Serious: Yes (Other)
  Sender: FDA-Public Use
  Company Number: US-GILEAD-2005-0008680

PATIENT
  Sex: Male
  Weight: 121 kg

DRUGS (14)
  1. TRUVADA [Suspect]
     Indication: HIV INFECTION
     Route: 048
     Dates: start: 20050103, end: 20050901
  2. SUSTIVA [Concomitant]
     Indication: HIV INFECTION
     Route: 048
     Dates: start: 20050103, end: 20050901
  3. CARDURA [Concomitant]
     Route: 048
     Dates: start: 20050907
  4. NOVOLOG [Concomitant]
     Route: 058
     Dates: start: 20050907
  5. TOPROL-XL [Concomitant]
     Route: 048
     Dates: start: 20050902
  6. ATROVENT [Concomitant]
     Route: 045
     Dates: start: 20050519
  7. ALLEGRA [Concomitant]
     Route: 048
     Dates: start: 20050429
  8. PRINIVIL [Concomitant]
     Route: 048
     Dates: start: 20050429
  9. PROTONIX [Concomitant]
     Route: 048
     Dates: start: 20050328
  10. NAFTIN [Concomitant]
     Route: 061
     Dates: start: 20050107
  11. LOMOTIL [Concomitant]
     Route: 048
     Dates: start: 20050103
  12. ESGIC-PLUS [Concomitant]
     Route: 048
     Dates: start: 20050103
  13. SULAR [Concomitant]
     Route: 048
     Dates: start: 20050103
  14. GLUCOTROL XL [Concomitant]
     Route: 048
     Dates: start: 20050103

REACTIONS (8)
  - ACIDOSIS [None]
  - ASPARTATE AMINOTRANSFERASE INCREASED [None]
  - BLOOD ALKALINE PHOSPHATASE INCREASED [None]
  - BLOOD CALCIUM INCREASED [None]
  - BLOOD CHLORIDE DECREASED [None]
  - BLOOD CREATININE INCREASED [None]
  - BLOOD GLUCOSE INCREASED [None]
  - LACTIC ACIDOSIS [None]
